FAERS Safety Report 6851551-1 (Version None)
Quarter: 2010Q3

REPORT INFORMATION
  Report Type: 
  Country: None (occurrence: None)
  Receive Date: 20100717
  Receipt Date: 20080117
  Transmission Date: 20110219
  Serious: No
  Sender: FDA-Public Use
  Company Number: US-PFIZER INC-2008006835

PATIENT
  Sex: Male
  Weight: 138.3 kg

DRUGS (4)
  1. CHANTIX [Suspect]
     Indication: SMOKING CESSATION THERAPY
     Dates: start: 20071001
  2. VICODIN [Concomitant]
     Indication: SPINAL OSTEOARTHRITIS
  3. ZANTAC [Concomitant]
     Indication: GASTRIC ULCER
  4. TRIAMTERENE [Concomitant]

REACTIONS (3)
  - INCORRECT DOSE ADMINISTERED [None]
  - JOINT SWELLING [None]
  - OEDEMA PERIPHERAL [None]
